FAERS Safety Report 5551638-X (Version None)
Quarter: 2007Q4

REPORT INFORMATION
  Report Type: 
  Country: None (occurrence: None)
  Receive Date: 20071212
  Receipt Date: 20071129
  Transmission Date: 20080405
  Serious: Yes (Hospitalization)
  Sender: FDA-Public Use
  Company Number: US-ELI_LILLY_AND_COMPANY-US200711006789

PATIENT
  Sex: Female

DRUGS (6)
  1. FORTEO [Suspect]
     Indication: OSTEOPOROSIS
     Dates: start: 20020101, end: 20050101
  2. CITALOPRAM [Concomitant]
     Dosage: 50 MG, UNK
  3. BENICAR [Concomitant]
     Indication: HYPERTENSION
     Dosage: 20 MG, UNK
  4. CALCIUM [Concomitant]
     Indication: SUPPLEMENTATION THERAPY
  5. REQUIP [Concomitant]
     Dosage: UNK, AS NEEDED
  6. VITAMIN D [Concomitant]

REACTIONS (2)
  - DRUG INEFFECTIVE [None]
  - LUMBAR VERTEBRAL FRACTURE [None]
